FAERS Safety Report 9185889 (Version 1)
Quarter: 2013Q1

REPORT INFORMATION
  Report Type: Report from Study
  Country: DE (occurrence: DE)
  Receive Date: 20130325
  Receipt Date: 20130325
  Transmission Date: 20140127
  Serious: Yes (Death)
  Sender: FDA-Public Use
  Company Number: DE-ABBOTT-13P-062-1067575-00

PATIENT
  Age: 69 Year
  Sex: Male

DRUGS (5)
  1. TRENANTONE [Suspect]
     Route: 058
     Dates: start: 20121022, end: 20130208
  2. ACE INHIBITOR/ATI-ANTAGONIST [Concomitant]
     Indication: PRODUCT USED FOR UNKNOWN INDICATION
  3. BETA BLOCKING AGENT [Concomitant]
     Indication: PRODUCT USED FOR UNKNOWN INDICATION
  4. ALLOPURINOL [Concomitant]
     Indication: PRODUCT USED FOR UNKNOWN INDICATION
  5. MARCUMAR [Concomitant]
     Indication: PRODUCT USED FOR UNKNOWN INDICATION

REACTIONS (1)
  - Cardiovascular disorder [Fatal]
